FAERS Safety Report 6844794-4 (Version None)
Quarter: 2010Q3

REPORT INFORMATION
  Report Type: 
  Country: None (occurrence: None)
  Receive Date: 20100715
  Receipt Date: 20100712
  Transmission Date: 20110219
  Serious: Yes (Hospitalization, Other)
  Sender: FDA-Public Use
  Company Number: HR-ROXANE LABORATORIES, INC.-2010-RO-00824RO

PATIENT
  Age: 58 Year
  Sex: Male

DRUGS (8)
  1. MYCOPHENOLATE MOFETIL [Suspect]
     Indication: LIVER TRANSPLANT
  2. MYCOPHENOLATE MOFETIL [Suspect]
     Indication: IMMUNOSUPPRESSION
  3. CYCLOSPORINE [Suspect]
     Indication: LIVER TRANSPLANT
  4. PREDNISOLONE [Suspect]
     Indication: LIVER TRANSPLANT
  5. VALGANCICLOVIR HCL [Suspect]
     Indication: PROPHYLAXIS
  6. TRIMETOPRIN-SULFOMETOXASOL [Suspect]
     Indication: PROPHYLAXIS
  7. HUMAN IMMUNOGLOBULINS [Suspect]
     Indication: ERYTHEMA INFECTIOSUM
     Route: 042
  8. HUMAN IMMUNOGLOBULINS [Suspect]
     Indication: APLASIA PURE RED CELL

REACTIONS (3)
  - APLASIA PURE RED CELL [None]
  - ERYTHEMA INFECTIOSUM [None]
  - TRANSPLANT REJECTION [None]
